FAERS Safety Report 16280731 (Version 1)
Quarter: 2019Q2

REPORT INFORMATION
  Report Type: Spontaneous
  Country: US (occurrence: US)
  Receive Date: 20190507
  Receipt Date: 20190507
  Transmission Date: 20190711
  Serious: No
  Sender: FDA-Public Use
  Company Number: US-ELI_LILLY_AND_COMPANY-US201905001663

PATIENT

DRUGS (1)
  1. CYMBALTA [Suspect]
     Active Substance: DULOXETINE HYDROCHLORIDE
     Indication: FIBROMYALGIA
     Dosage: 30 U, DAILY
     Route: 048
     Dates: start: 20180619, end: 20180626

REACTIONS (1)
  - Abnormal dreams [Recovering/Resolving]

NARRATIVE: CASE EVENT DATE: 20180619
